FAERS Safety Report 10401456 (Version 1)
Quarter: 2014Q3

REPORT INFORMATION
  Report Type: Spontaneous
  Country: US (occurrence: None)
  Receive Date: 20140819
  Receipt Date: 20140819
  Transmission Date: 20150326
  Serious: Yes (Other)
  Sender: FDA-Public Use
  Company Number: None

PATIENT
  Age: 49 Year
  Sex: Male
  Weight: 81.65 kg

DRUGS (3)
  1. LYRICA [Concomitant]
     Active Substance: PREGABALIN
  2. PROTONIX [Concomitant]
     Active Substance: PANTOPRAZOLE SODIUM
  3. MORPHINE SULFATE. [Suspect]
     Active Substance: MORPHINE SULFATE
     Dosage: MS CONTININ BID ORAL
     Route: 048

REACTIONS (2)
  - Rash [None]
  - Inadequate analgesia [None]
